FAERS Safety Report 8812670 (Version 1)
Quarter: 2012Q4

REPORT INFORMATION
  Report Type: 
  Country: US (occurrence: US)
  Receive Date: 20120927
  Receipt Date: 20120927
  Transmission Date: 20130627
  Serious: Yes (Other)
  Sender: FDA-Public Use
  Company Number: GXBR2012US001969

PATIENT
  Sex: Female

DRUGS (16)
  1. METOPROLOL SUCCINATE ER [Suspect]
     Dosage: 25 mg, QD
  2. TRICOR [Concomitant]
     Dosage: UNK DF, UNK
  3. OMEPRAZOLE [Concomitant]
     Dosage: UNK DF, UNK
  4. TYLENOL [Concomitant]
     Dosage: UNK DF, UNK
  5. ASPIRIN ^BAYER^ [Concomitant]
     Dosage: UNK DF, UNK
  6. VITAMIN B12 [Concomitant]
     Dosage: UNK DF, UNK
  7. MULTIVITAMIN ^LAPPE^ [Concomitant]
     Dosage: UNK DF, UNK
  8. OCUVITE                            /01053801/ [Concomitant]
     Dosage: UNK DF, UNK
  9. OLIVE OIL [Concomitant]
     Dosage: UNK DF, UNK
  10. FISH OIL [Concomitant]
     Dosage: UNK DF, UNK
  11. FLAXSEED OIL [Concomitant]
     Dosage: UNK DF, UNK
  12. PROBIOTICS [Concomitant]
     Dosage: UNK DF, UNK
  13. BOOST [Concomitant]
     Dosage: UNK DF, UNK
  14. DESONIDE [Concomitant]
     Dosage: UNK DF, UNK
  15. SALONPAS [Concomitant]
     Dosage: UNK DF, UNK
  16. RITUXAN [Concomitant]
     Dosage: UNK DF, UNK
     Dates: start: 20120109

REACTIONS (2)
  - Neoplasm malignant [Recovering/Resolving]
  - Osteoporosis [Not Recovered/Not Resolved]
